FAERS Safety Report 8801033 (Version 1)
Quarter: 2012Q4

REPORT INFORMATION
  Report Type: 
  Country: GB (occurrence: GB)
  Receive Date: 20120921
  Receipt Date: 20120921
  Transmission Date: 20130627
  Serious: Yes (Hospitalization, Disabling)
  Sender: FDA-Public Use
  Company Number: GB-WATSON-2012-05229

PATIENT
  Age: 67 Year
  Sex: Male
  Weight: 89.9 kg

DRUGS (3)
  1. LOSARTAN POTASSIUM (UNKNOWN) [Suspect]
     Indication: HYPERTENSION
     Dosage: 100 mg, unknown
     Route: 065
     Dates: start: 20111130, end: 20120207
  2. TAMSULOSIN [Concomitant]
     Indication: PRODUCT USED FOR UNKNOWN INDICATION
     Dosage: 400 mg, unknown
     Route: 065
     Dates: start: 20110317
  3. SIMVASTATIN [Concomitant]
     Indication: PRODUCT USED FOR UNKNOWN INDICATION
     Dosage: 40 mg, unknown
     Route: 065
     Dates: start: 20110927

REACTIONS (2)
  - Cerebrovascular accident [Recovering/Resolving]
  - Cerebral infarction [Unknown]
